FAERS Safety Report 7825363-6 (Version None)
Quarter: 2011Q4

REPORT INFORMATION
  Report Type: 
  Country: None (occurrence: None)
  Receive Date: 20111019
  Receipt Date: 20111013
  Transmission Date: 20120403
  Serious: Yes (Congenital Anomaly)
  Sender: FDA-Public Use
  Company Number: PHHY2011US90226

PATIENT

DRUGS (2)
  1. CARBAMAZEPINE [Suspect]
     Dosage: MATERNAL DOSE :200 MG
     Route: 064
  2. LAMOTRIGINE [Suspect]
     Indication: EPILEPSY
     Dosage: MATERNAL DOSE :100 MG
     Route: 064

REACTIONS (2)
  - MENINGOMYELOCELE [None]
  - MATERNAL EXPOSURE DURING PREGNANCY [None]
